FAERS Safety Report 12393116 (Version 1)
Quarter: 2016Q2

REPORT INFORMATION
  Report Type: Spontaneous
  Country: US (occurrence: US)
  Receive Date: 20160523
  Receipt Date: 20160523
  Transmission Date: 20160815
  Serious: No
  Sender: FDA-Public Use
  Company Number: US-PFIZER INC-2016258447

PATIENT
  Age: 62 Year
  Sex: Female
  Weight: 76.2 kg

DRUGS (1)
  1. XELJANZ [Suspect]
     Active Substance: TOFACITINIB CITRATE
     Indication: RHEUMATOID ARTHRITIS
     Dosage: 5 MG, UNK
     Dates: start: 20160501

REACTIONS (9)
  - Nausea [Unknown]
  - Lip exfoliation [Unknown]
  - Lip dry [Unknown]
  - Drug ineffective [Unknown]
  - Condition aggravated [Unknown]
  - Decreased appetite [Unknown]
  - Pain [Unknown]
  - Dry mouth [Unknown]
  - Inflammation [Unknown]
